FAERS Safety Report 16373175 (Version 1)
Quarter: 2019Q2

REPORT INFORMATION
  Report Type: Report from Study
  Country: None (occurrence: US)
  Receive Date: 20190530
  Receipt Date: 20190530
  Transmission Date: 20190711
  Serious: Yes (Other)
  Sender: FDA-Public Use
  Company Number: US-ABBVIE-19S-163-2794291-00

PATIENT
  Age: 65 Year
  Sex: Male

DRUGS (1)
  1. ANDROGEL [Suspect]
     Active Substance: TESTOSTERONE
     Indication: PRODUCT USED FOR UNKNOWN INDICATION
     Route: 062

REACTIONS (38)
  - Dysphagia [Unknown]
  - Osteoporosis [Unknown]
  - Vomiting [Unknown]
  - Nausea [Recovered/Resolved]
  - Drug abuse [Unknown]
  - Pancreatic disorder [Unknown]
  - Large intestine polyp [Unknown]
  - Impaired gastric emptying [Unknown]
  - Abdominal pain [Unknown]
  - Device related infection [Unknown]
  - Cardiac valve disease [Unknown]
  - Haemorrhoids [Unknown]
  - Gastrooesophageal reflux disease [Unknown]
  - Tremor [Unknown]
  - Vertigo [Unknown]
  - Dyspnoea [Recovered/Resolved]
  - Asthma [Unknown]
  - Ankylosing spondylitis [Unknown]
  - Hypercholesterolaemia [Unknown]
  - Constipation [Unknown]
  - Parkinson^s disease [Unknown]
  - Confusional state [Unknown]
  - Depression [Unknown]
  - Anaemia [Unknown]
  - Dyspnoea [Unknown]
  - Renal failure [Unknown]
  - Hypogonadism male [Unknown]
  - Abdominal distension [Unknown]
  - Chronic kidney disease [Unknown]
  - Testicular pain [Unknown]
  - Nausea [Recovered/Resolved]
  - Irritable bowel syndrome [Unknown]
  - Nausea [Unknown]
  - Obesity [Unknown]
  - Essential hypertension [Unknown]
  - Hyperuricaemia [Unknown]
  - Pain [Unknown]
  - Amnesia [Unknown]

NARRATIVE: CASE EVENT DATE: 20130205
